FAERS Safety Report 8780400 (Version 1)
Quarter: 2012Q4

REPORT INFORMATION
  Report Type: Spontaneous
  Country: US (occurrence: None)
  Receive Date: 20120905
  Receipt Date: 20120905
  Transmission Date: 20130627
  Serious: Yes (Other)
  Sender: FDA-Public Use
  Company Number: None

PATIENT
  Age: 60 Year
  Sex: Male
  Weight: 95.26 kg

DRUGS (2)
  1. PATANASE [Suspect]
     Indication: MULTIPLE ALLERGIES
     Dosage: 2 sprays
     Route: 055
     Dates: start: 20120719, end: 20120815
  2. FLUTICASONE [Suspect]
     Dosage: 2 sprays 1x
     Route: 055
     Dates: start: 20120719, end: 20120815

REACTIONS (1)
  - Heat exhaustion [None]
